FAERS Safety Report 8202926 (Version 2)
Quarter: 2014Q2

REPORT INFORMATION
  Report Type: Spontaneous
  Country: US (occurrence: US)
  Receive Date: 20111027
  Receipt Date: 20140625
  Transmission Date: 20141212
  Serious: Yes (Hospitalization)
  Sender: FDA-Public Use
  Company Number: US-ASTRAZENECA-2011SE57379

PATIENT
  Age: 56 Year
  Sex: Female
  Weight: 93.4 kg

DRUGS (26)
  1. SEROQUEL [Suspect]
     Indication: BIPOLAR DISORDER
     Route: 048
     Dates: start: 201010
  2. SEROQUEL [Suspect]
     Indication: MAJOR DEPRESSION
     Route: 048
     Dates: start: 201010
  3. SEROQUEL [Suspect]
     Indication: SLEEP DISORDER
     Route: 048
     Dates: start: 201010
  4. SEROQUEL [Suspect]
     Indication: BIPOLAR DISORDER
     Route: 048
     Dates: start: 201103
  5. SEROQUEL [Suspect]
     Indication: MAJOR DEPRESSION
     Route: 048
     Dates: start: 201103
  6. SEROQUEL [Suspect]
     Indication: SLEEP DISORDER
     Route: 048
     Dates: start: 201103
  7. SYMBICORT [Suspect]
     Indication: ASTHMA
     Dosage: 160 MCG TWO PUFFS TWICE DAILY
     Route: 055
  8. SYMBICORT [Suspect]
     Indication: CHRONIC OBSTRUCTIVE PULMONARY DISEASE
     Dosage: 160 MCG TWO PUFFS TWICE DAILY
     Route: 055
  9. NEXIUM [Suspect]
     Indication: GASTROOESOPHAGEAL REFLUX DISEASE
     Route: 048
     Dates: start: 2010
  10. NEXIUM [Suspect]
     Indication: GASTROOESOPHAGEAL REFLUX DISEASE
     Route: 048
  11. NEXIUM [Suspect]
     Indication: GASTROOESOPHAGEAL REFLUX DISEASE
     Route: 048
  12. CRESTOR [Suspect]
     Indication: BLOOD CHOLESTEROL INCREASED
     Route: 048
  13. CYMBALTA [Concomitant]
     Route: 065
  14. PATENOL EYEDROPS [Concomitant]
     Route: 065
  15. SINGULAIR [Concomitant]
     Indication: ASTHMA
  16. ALLEGRA [Concomitant]
  17. LIPITOR [Concomitant]
     Indication: BLOOD CHOLESTEROL
  18. DEPACOLT [Concomitant]
  19. METOPROLOL [Concomitant]
  20. MULTIVITAMINS [Concomitant]
  21. CALCIUM [Concomitant]
  22. PROLANE INHALER [Concomitant]
  23. EPIPHEN [Concomitant]
     Indication: ARTHROPOD STING
  24. TRIAMPHENOLONE [Concomitant]
  25. CYCLOBENZAPRINE [Concomitant]
  26. VITAMINS [Concomitant]

REACTIONS (7)
  - Depression [Unknown]
  - Chest pain [Unknown]
  - Eye pruritus [Recovered/Resolved]
  - Osteopenia [Unknown]
  - Nasal discomfort [Unknown]
  - Epigastric discomfort [Recovering/Resolving]
  - Therapeutic response increased [Unknown]
